FAERS Safety Report 6573110-0 (Version None)
Quarter: 2010Q1

REPORT INFORMATION
  Report Type: 
  Country: None (occurrence: None)
  Receive Date: 20100208
  Receipt Date: 20100127
  Transmission Date: 20100710
  Serious: Yes (Hospitalization)
  Sender: FDA-Public Use
  Company Number: US-JNJFOC-20100201618

PATIENT
  Age: 26 Year
  Sex: Female
  Weight: 82.56 kg

DRUGS (1)
  1. SIMPLY SLEEP NIGHTTIME [Suspect]
     Indication: INSOMNIA

REACTIONS (6)
  - DIARRHOEA HAEMORRHAGIC [None]
  - GASTROINTESTINAL INFECTION [None]
  - GASTROINTESTINAL INFLAMMATION [None]
  - HAEMATEMESIS [None]
  - PRODUCT QUALITY ISSUE [None]
  - WEIGHT DECREASED [None]
